FAERS Safety Report 11236001 (Version 2)
Quarter: 2015Q3

REPORT INFORMATION
  Report Type: Spontaneous
  Country: US (occurrence: US)
  Receive Date: 20150702
  Receipt Date: 20150729
  Transmission Date: 20151125
  Serious: No
  Sender: FDA-Public Use
  Company Number: US-PFIZER INC-2015216460

PATIENT
  Age: 52 Year
  Sex: Male

DRUGS (1)
  1. PRISTIQ EXTENDED RELEASE [Suspect]
     Active Substance: DESVENLAFAXINE SUCCINATE
     Indication: DEPRESSION
     Dosage: 50 MG, (1-2 QHS)
     Route: 048
     Dates: start: 20150505, end: 20150701

REACTIONS (4)
  - Decreased interest [Not Recovered/Not Resolved]
  - Depressed mood [Not Recovered/Not Resolved]
  - Heart rate increased [Unknown]
  - Social phobia [Not Recovered/Not Resolved]

NARRATIVE: CASE EVENT DATE: 2015
